FAERS Safety Report 6502949-2 (Version None)
Quarter: 2009Q4

REPORT INFORMATION
  Report Type: 
  Country: None (occurrence: None)
  Receive Date: 20091217
  Receipt Date: 20091207
  Transmission Date: 20100525
  Serious: Yes (Other)
  Sender: FDA-Public Use
  Company Number: PHHY2009GB04842

PATIENT
  Age: 47 Year
  Sex: Female

DRUGS (2)
  1. CLOZAPINE [Suspect]
     Dosage: UNK
     Route: 048
     Dates: start: 20010701, end: 20081122
  2. ZAPONEX [Suspect]
     Dosage: UNK
     Route: 048
     Dates: start: 20081123, end: 20081212

REACTIONS (3)
  - HEPATITIS C [None]
  - LEUKOPENIA [None]
  - NEUTROPENIA [None]
